FAERS Safety Report 5879519-2 (Version None)
Quarter: 2008Q3

REPORT INFORMATION
  Report Type: 
  Country: None (occurrence: None)
  Receive Date: 20080912
  Receipt Date: 20080902
  Transmission Date: 20090109
  Serious: Yes (Other)
  Sender: FDA-Public Use
  Company Number: US-ELI_LILLY_AND_COMPANY-US200809000510

PATIENT
  Sex: Male

DRUGS (1)
  1. CIALIS [Suspect]
     Indication: ERECTILE DYSFUNCTION
     Dosage: 20 MG, UNK

REACTIONS (2)
  - DRUG INEFFECTIVE [None]
  - PROSTATE CANCER [None]
